FAERS Safety Report 8815009 (Version 2)
Quarter: 2014Q3

REPORT INFORMATION
  Report Type: Report from Study
  Country: US (occurrence: US)
  Receive Date: 20120928
  Receipt Date: 20140825
  Transmission Date: 20150326
  Serious: Yes (Death, Hospitalization, Other)
  Sender: FDA-Public Use
  Company Number: US-ROCHE-1095444

PATIENT
  Sex: Male
  Weight: 60 kg

DRUGS (4)
  1. MEGACE [Concomitant]
     Active Substance: MEGESTROL ACETATE
  2. AVASTIN [Suspect]
     Active Substance: BEVACIZUMAB
     Indication: MALIGNANT URINARY TRACT NEOPLASM
     Route: 042
  3. TARCEVA [Suspect]
     Active Substance: ERLOTINIB HYDROCHLORIDE
     Indication: RENAL CANCER
     Route: 065
  4. AVASTIN [Suspect]
     Active Substance: BEVACIZUMAB
     Indication: METASTATIC RENAL CELL CARCINOMA

REACTIONS (10)
  - Diverticulitis [Unknown]
  - Pleural effusion [Unknown]
  - Metastases to liver [Unknown]
  - Aortic aneurysm [Unknown]
  - Oesophageal disorder [Unknown]
  - Off label use [Unknown]
  - Pain [Unknown]
  - Death [Fatal]
  - Metastasis [Unknown]
  - Asthenia [Unknown]
